FAERS Safety Report 14943361 (Version 2)
Quarter: 2021Q4

REPORT INFORMATION
  Report Type: Spontaneous
  Country: GR (occurrence: GR)
  Receive Date: 20180528
  Receipt Date: 20211203
  Transmission Date: 20220303
  Serious: Yes (Life-Threatening)
  Sender: FDA-Public Use
  Company Number: None

PATIENT
  Age: 63 Year
  Sex: Female
  Weight: 58 kg

DRUGS (3)
  1. VAGIFEM [Suspect]
     Active Substance: ESTRADIOL
     Indication: Inflammation
     Dosage: 1 DF, QD
     Route: 067
     Dates: start: 20180110, end: 20180119
  2. VAGIFEM [Suspect]
     Active Substance: ESTRADIOL
     Dosage: 1 DF, QW
     Route: 067
     Dates: start: 20180209, end: 20180419
  3. VAGIFEM [Suspect]
     Active Substance: ESTRADIOL
     Dosage: 1 DF EVERY OTHER DAY
     Route: 067
     Dates: start: 20180120, end: 20180208

REACTIONS (6)
  - Scar [Not Recovered/Not Resolved]
  - Rash [Not Recovered/Not Resolved]
  - Skin mass [Not Recovered/Not Resolved]
  - Condition aggravated [Not Recovered/Not Resolved]
  - Product use in unapproved indication [Unknown]
  - Drug dose titration not performed [Unknown]

NARRATIVE: CASE EVENT DATE: 20180110
